FAERS Safety Report 4596941-5 (Version None)
Quarter: 2005Q1

REPORT INFORMATION
  Report Type: 
  Country: None (occurrence: None)
  Receive Date: 20050228
  Receipt Date: 20050214
  Transmission Date: 20050727
  Serious: Yes (Other)
  Sender: FDA-Public Use
  Company Number: 2005025481

PATIENT
  Age: 74 Year
  Sex: Male
  Weight: 83.0083 kg

DRUGS (2)
  1. LIPITOR [Suspect]
     Indication: BLOOD CHOLESTEROL
     Dosage: 10 MG (10 MG, 1 IN 1 D), ORAL
     Route: 048
  2. ROSUVASTATIN (ROSUVASTATIN) [Suspect]
     Indication: CORONARY ARTERY OCCLUSION
     Dosage: (10 MG) , ORAL
     Route: 048
     Dates: start: 20041101, end: 20050204

REACTIONS (3)
  - BLOOD CHOLESTEROL INCREASED [None]
  - CHEST PAIN [None]
  - CORONARY ARTERY OCCLUSION [None]
